FAERS Safety Report 16207305 (Version 3)
Quarter: 2019Q2

REPORT INFORMATION
  Report Type: Spontaneous
  Country: PL (occurrence: PL)
  Receive Date: 20190417
  Receipt Date: 20190607
  Transmission Date: 20190711
  Serious: Yes (Other)
  Sender: FDA-Public Use
  Company Number: PHHY2019PL081476

PATIENT

DRUGS (12)
  1. CALCIUM [Suspect]
     Active Substance: CALCIUM
     Indication: BONE DENSITY DECREASED
  2. ALENDRONIC ACID [Concomitant]
     Active Substance: ALENDRONIC ACID
     Dosage: UNK
     Route: 065
  3. VITAMIN D3 [Concomitant]
     Active Substance: CHOLECALCIFEROL
     Indication: HYPOVITAMINOSIS
     Dosage: UNK
     Route: 065
  4. ATORVASTATIN [Suspect]
     Active Substance: ATORVASTATIN
     Indication: BLOOD GONADOTROPHIN INCREASED
  5. ALENDRONIC ACID [Concomitant]
     Active Substance: ALENDRONIC ACID
     Indication: BONE DENSITY DECREASED
     Route: 065
  6. LEVOTHYROXINE. [Concomitant]
     Active Substance: LEVOTHYROXINE
     Indication: PRODUCT USED FOR UNKNOWN INDICATION
     Route: 065
  7. COLECALCIFEROL [Suspect]
     Active Substance: CHOLECALCIFEROL
     Indication: TURNER^S SYNDROME
     Route: 065
  8. ATORVASTATIN [Suspect]
     Active Substance: ATORVASTATIN
     Indication: TURNER^S SYNDROME
     Route: 065
  9. ATORVASTATIN [Suspect]
     Active Substance: ATORVASTATIN
     Indication: FEMALE SEX HORMONE LEVEL ABNORMAL
  10. COLECALCIFEROL [Suspect]
     Active Substance: CHOLECALCIFEROL
     Indication: BONE DENSITY DECREASED
  11. CALCIUM [Suspect]
     Active Substance: CALCIUM
     Indication: TURNER^S SYNDROME
     Route: 065
  12. ESTRADIOL + NORETHISTERONE ACETATE [Concomitant]
     Indication: PRIMARY HYPOGONADISM
     Dosage: TRANSDERMAL PATCH SYSTEM
     Route: 062

REACTIONS (6)
  - Drug ineffective [Unknown]
  - Off label use [Unknown]
  - Deafness bilateral [Unknown]
  - Deafness [Unknown]
  - Hypothyroidism [Recovered/Resolved]
  - Product use in unapproved indication [Unknown]

NARRATIVE: CASE EVENT DATE: 2015
